FAERS Safety Report 19141072 (Version 1)
Quarter: 2021Q2

REPORT INFORMATION
  Report Type: Spontaneous
  Country: FI (occurrence: FI)
  Receive Date: 20210415
  Receipt Date: 20210415
  Transmission Date: 20210717
  Serious: Yes (Hospitalization)
  Sender: FDA-Public Use
  Company Number: FI-EMD SERONO-9231279

PATIENT
  Age: 27 Year
  Sex: Female

DRUGS (1)
  1. CLADRIBINE. [Suspect]
     Active Substance: CLADRIBINE
     Indication: PRODUCT USED FOR UNKNOWN INDICATION
     Dosage: YEAR ONE THERAPY

REACTIONS (2)
  - Cholangitis [Recovering/Resolving]
  - Bile duct stenosis [Recovering/Resolving]
